FAERS Safety Report 19131993 (Version 1)
Quarter: 2021Q2

REPORT INFORMATION
  Report Type: Report from Study
  Country: FR (occurrence: FR)
  Receive Date: 20210413
  Receipt Date: 20210413
  Transmission Date: 20210717
  Serious: Yes (Hospitalization, Other)
  Sender: FDA-Public Use
  Company Number: FR-TAKEDA-2021TUS020853

PATIENT
  Sex: Male

DRUGS (1)
  1. IXAZOMIB [Suspect]
     Active Substance: IXAZOMIB
     Indication: PRODUCT USED FOR UNKNOWN INDICATION
     Dosage: UNK
     Route: 065
     Dates: end: 20200703

REACTIONS (5)
  - Odynophagia [Unknown]
  - Diarrhoea [Unknown]
  - Epigastric discomfort [Unknown]
  - Constipation [Unknown]
  - Lung abscess [Recovering/Resolving]

NARRATIVE: CASE EVENT DATE: 20200630
